FAERS Safety Report 12119773 (Version 2)
Quarter: 2016Q1

REPORT INFORMATION
  Report Type: Spontaneous
  Country: US (occurrence: US)
  Receive Date: 20160226
  Receipt Date: 20160315
  Transmission Date: 20160526
  Serious: Yes (Other)
  Sender: FDA-Public Use
  Company Number: US-SUNOVION-2016SUN000465

PATIENT
  Age: 55 Year
  Sex: Female
  Weight: 72.56 kg

DRUGS (3)
  1. FLEXERIL [Concomitant]
     Active Substance: CYCLOBENZAPRINE HYDROCHLORIDE
     Dosage: 5 MG, UNK
     Route: 065
  2. LUNESTA [Suspect]
     Active Substance: ESZOPICLONE
     Indication: INSOMNIA
     Dosage: 2 MG, HS
     Route: 048
  3. ORENCIA [Concomitant]
     Active Substance: ABATACEPT
     Dosage: UNK, QW
     Route: 058

REACTIONS (1)
  - Electrocardiogram QT prolonged [Unknown]
